FAERS Safety Report 20871127 (Version 1)
Quarter: 2022Q2

REPORT INFORMATION
  Report Type: Spontaneous
  Country: US (occurrence: None)
  Receive Date: 20220524
  Receipt Date: 20220524
  Transmission Date: 20220720
  Serious: Yes (Hospitalization)
  Sender: FDA-Public Use
  Company Number: None

PATIENT

DRUGS (2)
  1. EPINEPHRINE [Suspect]
     Active Substance: EPINEPHRINE
     Route: 042
  2. EPHEDRINE [Suspect]
     Active Substance: EPHEDRINE
     Route: 042

REACTIONS (5)
  - Wrong product stored [None]
  - Product packaging confusion [None]
  - Product label confusion [None]
  - Product name confusion [None]
  - Intercepted product dispensing error [None]
